FAERS Safety Report 18358758 (Version 3)
Quarter: 2020Q4

REPORT INFORMATION
  Report Type: Spontaneous
  Country: US (occurrence: US)
  Receive Date: 20201008
  Receipt Date: 20201123
  Transmission Date: 20210114
  Serious: Yes (Hospitalization, Other)
  Sender: FDA-Public Use
  Company Number: US-SAREPTA THERAPEUTICS INC.-SRP2020-000907

PATIENT
  Age: 15 Year
  Sex: Male
  Weight: 60.32 kg

DRUGS (1)
  1. VYONDYS 53 [Suspect]
     Active Substance: GOLODIRSEN
     Indication: DUCHENNE MUSCULAR DYSTROPHY
     Dosage: 1800 MG, WEEKLY
     Route: 042
     Dates: start: 20200825

REACTIONS (3)
  - Catheter site erosion [Unknown]
  - Product dose omission issue [Unknown]
  - Catheter site infection [Unknown]

NARRATIVE: CASE EVENT DATE: 2020
